FAERS Safety Report 6508612-6 (Version None)
Quarter: 2009Q4

REPORT INFORMATION
  Report Type: 
  Country: None (occurrence: None)
  Receive Date: 20091221
  Receipt Date: 20091218
  Transmission Date: 20100525
  Serious: Yes (Hospitalization)
  Sender: FDA-Public Use
  Company Number: DE-WYE-G05181309

PATIENT
  Weight: 83 kg

DRUGS (1)
  1. REFACTO [Suspect]
     Indication: FACTOR VIII DEFICIENCY
     Dosage: REGULAR DOSAGE UNKNOWN, 11000 IU ON 04-NOV-2008, THEN STEPWISE REDUCED TO 2000 IU/D IN LATE NOV-2009
     Route: 042

REACTIONS (1)
  - JOINT ARTHROPLASTY [None]
